FAERS Safety Report 5855041-4 (Version None)
Quarter: 2008Q3

REPORT INFORMATION
  Report Type: 
  Country: None (occurrence: None)
  Receive Date: 20080822
  Receipt Date: 20080523
  Transmission Date: 20090109
  Serious: No
  Sender: FDA-Public Use
  Company Number: US-ABBOTT-08P-163-0455242-00

PATIENT
  Sex: Female
  Weight: 109.87 kg

DRUGS (8)
  1. SYNTHROID [Suspect]
     Indication: AUTOIMMUNE THYROIDITIS
     Route: 048
     Dates: start: 20070801
  2. SYNTHROID [Suspect]
     Route: 048
     Dates: start: 19830101, end: 20070801
  3. LENTIS [Concomitant]
     Indication: DIABETES MELLITUS
     Route: 058
     Dates: start: 20070901
  4. INSULIN ASPART [Concomitant]
     Indication: DIABETES MELLITUS
     Dosage: WITH MEALS IF HIGH
     Route: 058
     Dates: start: 20070901
  5. IRBESARTAN AND HYDROCHLOROTHIAZIDE [Concomitant]
     Indication: HYPERTENSION
     Dosage: 300/12.5 MG DAILY
     Route: 048
     Dates: start: 20030101
  6. EMERRIL [Concomitant]
     Indication: DIABETES MELLITUS
     Route: 048
     Dates: start: 20070101
  7. OXYOCODONE HCL [Concomitant]
     Indication: INTERVERTEBRAL DISC DISORDER
     Route: 048
     Dates: start: 20070101
  8. ADALIMUMAB [Concomitant]
     Indication: PSORIATIC ARTHROPATHY
     Route: 058
     Dates: start: 20080520

REACTIONS (1)
  - THYROID FUNCTION TEST ABNORMAL [None]
